FAERS Safety Report 11438318 (Version 1)
Quarter: 2015Q3

REPORT INFORMATION
  Report Type: Spontaneous
  Country: US (occurrence: None)
  Receive Date: 20150828
  Receipt Date: 20150828
  Transmission Date: 20151125
  Serious: Yes (Hospitalization)
  Sender: FDA-Public Use
  Company Number: 1713747-2015-999279

PATIENT
  Age: 68 Year
  Sex: Female
  Weight: 90.27 kg

DRUGS (8)
  1. SENSIPAR [Concomitant]
     Active Substance: CINACALCET HYDROCHLORIDE
  2. MIDORINE [Concomitant]
     Active Substance: MIDODRINE
  3. NORCO [Concomitant]
     Active Substance: ACETAMINOPHEN\HYDROCODONE BITARTRATE
  4. DELFLEX [Suspect]
     Active Substance: CALCIUM CHLORIDE\DEXTROSE MONOHYDRATE\MAGNESIUM CHLORIDE\SODIUM CHLORIDE\SODIUM LACTATE
     Indication: PERITONEAL DIALYSIS
     Route: 032
  5. LIBERTY CYCLER CASSETTE [Concomitant]
     Active Substance: DEVICE
  6. PLAVIX [Concomitant]
     Active Substance: CLOPIDOGREL BISULFATE
  7. LIBERTY CYCLER [Concomitant]
     Active Substance: DEVICE
  8. LANTUS [Concomitant]
     Active Substance: INSULIN GLARGINE

REACTIONS (6)
  - Hypotension [None]
  - Liver disorder [None]
  - Hypovolaemia [None]
  - Vomiting [None]
  - Acidosis [None]
  - Sepsis [None]

NARRATIVE: CASE EVENT DATE: 20150511
